FAERS Safety Report 7960322-4 (Version None)
Quarter: 2011Q4

REPORT INFORMATION
  Report Type: 
  Country: None (occurrence: None)
  Receive Date: 20111201
  Receipt Date: 20111121
  Transmission Date: 20120403
  Serious: Yes (Hospitalization, Disabling, Other)
  Sender: FDA-Public Use
  Company Number: 2010AL002644

PATIENT
  Age: 52 Year
  Sex: Female
  Weight: 79.3795 kg

DRUGS (16)
  1. CHLORDIAZEPOXIDE [Concomitant]
  2. AMOXICILLIN [Concomitant]
  3. CLINDAMYCIN [Concomitant]
  4. HYDROCODONE [Concomitant]
  5. FAMOTIDINE [Concomitant]
  6. MECLIZINE [Concomitant]
  7. DIOVAN [Concomitant]
  8. HYDROCHLOROTHIAZIDE [Concomitant]
  9. METOCLOPRAMIDE [Suspect]
     Indication: GASTROOESOPHAGEAL REFLUX DISEASE
     Dosage: 10 MG
     Dates: start: 20050708, end: 20070101
  10. HOMATROPINE [Concomitant]
  11. REQUIP [Concomitant]
  12. AMITRIPTYLINE HCL [Concomitant]
  13. GABAPENTIN [Concomitant]
  14. INDOMETHACIN [Concomitant]
  15. PROTONIX [Concomitant]
  16. MELATONIN [Concomitant]

REACTIONS (16)
  - EXTRAPYRAMIDAL DISORDER [None]
  - DYSKINESIA [None]
  - GLUCOSE TOLERANCE IMPAIRED [None]
  - ACTIVITIES OF DAILY LIVING IMPAIRED [None]
  - MENTAL DISORDER [None]
  - NERVOUS SYSTEM DISORDER [None]
  - DEFORMITY [None]
  - TREMOR [None]
  - QUALITY OF LIFE DECREASED [None]
  - ECONOMIC PROBLEM [None]
  - PAIN [None]
  - RESTLESS LEGS SYNDROME [None]
  - OBESITY [None]
  - MYOKYMIA [None]
  - SWELLING [None]
  - MULTIPLE INJURIES [None]
